FAERS Safety Report 14346905 (Version 1)
Quarter: 2018Q1

REPORT INFORMATION
  Report Type: Spontaneous
  Country: US (occurrence: US)
  Receive Date: 20180103
  Receipt Date: 20180103
  Transmission Date: 20180509
  Serious: No
  Sender: FDA-Public Use
  Company Number: US-INCYTE CORPORATION-2017IN011163

PATIENT

DRUGS (2)
  1. JAKAFI [Suspect]
     Active Substance: RUXOLITINIB
     Indication: LEUKAEMIA
     Dosage: 5 MG, BID
     Route: 048
     Dates: start: 201706
  2. JAKAFI [Suspect]
     Active Substance: RUXOLITINIB
     Dosage: 10 MG, BID
     Route: 048
     Dates: start: 201708

REACTIONS (1)
  - Off label use [Unknown]

NARRATIVE: CASE EVENT DATE: 201706
